FAERS Safety Report 24616103 (Version 1)
Quarter: 2024Q4

REPORT INFORMATION
  Report Type: Report from Study
  Country: CO (occurrence: CO)
  Receive Date: 20241113
  Receipt Date: 20241113
  Transmission Date: 20250114
  Serious: No
  Sender: MIRUM PHARMACEUTICALS
  Company Number: CO-MIRUM PHARMACEUTICALS, INC.-CO-MIR-24-00113

PATIENT

DRUGS (8)
  1. LIVMARLI [Suspect]
     Active Substance: MARALIXIBAT CHLORIDE
     Indication: Alagille syndrome
     Dosage: 0.6 MILLILITER, QD
     Route: 048
     Dates: start: 20241002
  2. LIVMARLI [Suspect]
     Active Substance: MARALIXIBAT CHLORIDE
     Dosage: 0.6 MILLILITER, QD
     Route: 048
     Dates: start: 20240805, end: 20240923
  3. LIVMARLI [Suspect]
     Active Substance: MARALIXIBAT CHLORIDE
     Dosage: 0.6 MILLILITER, QD
     Route: 048
     Dates: start: 20240217, end: 20240617
  4. URSODIOL [Concomitant]
     Active Substance: URSODIOL
     Indication: Alagille syndrome
     Dosage: 300 MILLIGRAM, Q12H
     Route: 048
     Dates: start: 20230201
  5. CALCIUM [Concomitant]
     Active Substance: CALCIUM
     Indication: Alagille syndrome
     Dosage: UNK
     Route: 065
  6. ZINC [Concomitant]
     Active Substance: ZINC
     Indication: Alagille syndrome
     Dosage: UNK
     Route: 065
  7. .ALPHA.-TOCOPHEROL [Concomitant]
     Active Substance: .ALPHA.-TOCOPHEROL
     Indication: Alagille syndrome
     Dosage: UNK
     Route: 065
  8. VITAMINS [Concomitant]
     Active Substance: VITAMINS
     Indication: Vitamin supplementation
     Dosage: 5 MILLILITER, QD
     Route: 048
     Dates: start: 20240201

REACTIONS (10)
  - Pruritus [Not Recovered/Not Resolved]
  - Blood alkaline phosphatase increased [Not Recovered/Not Resolved]
  - Gamma-glutamyltransferase increased [Not Recovered/Not Resolved]
  - Aspartate aminotransferase increased [Not Recovered/Not Resolved]
  - Blood bilirubin increased [Not Recovered/Not Resolved]
  - Alanine aminotransferase increased [Not Recovered/Not Resolved]
  - Insurance issue [Recovered/Resolved]
  - Product dispensing issue [Recovered/Resolved]
  - Therapy interrupted [Recovered/Resolved]
  - Drug ineffective [Unknown]

NARRATIVE: CASE EVENT DATE: 20240222
